FAERS Safety Report 18410191 (Version 1)
Quarter: 2020Q4

REPORT INFORMATION
  Report Type: Spontaneous
  Country: CN (occurrence: CN)
  Receive Date: 20201021
  Receipt Date: 20201021
  Transmission Date: 20210114
  Serious: Yes (Life-Threatening, Hospitalization)
  Sender: FDA-Public Use
  Company Number: CN-PFIZER INC-2020403395

PATIENT
  Age: 72 Year
  Sex: Male
  Weight: 60 kg

DRUGS (6)
  1. SODIUM CHLORIDE. [Concomitant]
     Active Substance: SODIUM CHLORIDE
     Indication: CHRONIC OBSTRUCTIVE PULMONARY DISEASE
  2. SODIUM CHLORIDE. [Concomitant]
     Active Substance: SODIUM CHLORIDE
     Indication: ANAEMIA
  3. NORMAL SALINE [Concomitant]
     Active Substance: SODIUM CHLORIDE
     Dosage: 200 ML, 2X/DAY (0.9% NS 200ML)
     Route: 041
     Dates: start: 20200915, end: 20200924
  4. TYGACIL [Suspect]
     Active Substance: TIGECYCLINE
     Indication: PNEUMONIA
     Dosage: 100 MG, 2X/DAY
     Route: 041
     Dates: start: 20200915, end: 20200924
  5. SODIUM CHLORIDE. [Concomitant]
     Active Substance: SODIUM CHLORIDE
     Indication: RESPIRATORY FAILURE
  6. SODIUM CHLORIDE. [Concomitant]
     Active Substance: SODIUM CHLORIDE
     Indication: PNEUMONIA
     Dosage: 200 ML, 2X/DAY
     Route: 041
     Dates: start: 20200915, end: 20200924

REACTIONS (2)
  - Platelet count decreased [Recovering/Resolving]
  - Respiratory tract haemorrhage [Unknown]

NARRATIVE: CASE EVENT DATE: 20200922
